FAERS Safety Report 20583094 (Version 1)
Quarter: 2022Q1

REPORT INFORMATION
  Report Type: Spontaneous
  Country: GB (occurrence: GB)
  Receive Date: 20220311
  Receipt Date: 20220311
  Transmission Date: 20220424
  Serious: Yes (Other)
  Sender: FDA-Public Use
  Company Number: GB-MHRA-MED-202202282249387740-PDOQM

PATIENT
  Age: 51 Year
  Sex: Male
  Weight: 73 kg

DRUGS (5)
  1. MIRTAZAPINE [Suspect]
     Active Substance: MIRTAZAPINE
     Indication: Sleep disorder
     Dosage: 30 MILLIGRAM, HS, (30MG ONCE PER DAY TAKEN BEFORE BED)
  2. CITALOPRAM [Concomitant]
     Active Substance: CITALOPRAM HYDROBROMIDE
     Indication: Adverse drug reaction
     Dosage: UNK
     Dates: start: 2018
  3. CITALOPRAM [Concomitant]
     Active Substance: CITALOPRAM HYDROBROMIDE
     Indication: Depression
  4. RABEPRAZOLE [Concomitant]
     Active Substance: RABEPRAZOLE
     Indication: Adverse drug reaction
     Dosage: UNK
     Dates: start: 1995
  5. RABEPRAZOLE [Concomitant]
     Active Substance: RABEPRAZOLE
     Indication: Gastric pH decreased

REACTIONS (8)
  - Daydreaming [Unknown]
  - Gait disturbance [Unknown]
  - Mood altered [Unknown]
  - Aggression [Unknown]
  - Self-injurious ideation [Unknown]
  - Dizziness [Unknown]
  - Abnormal dreams [Not Recovered/Not Resolved]
  - Lethargy [Unknown]
